FAERS Safety Report 11749518 (Version 1)
Quarter: 2015Q4

REPORT INFORMATION
  Report Type: Spontaneous
  Country: US (occurrence: None)
  Receive Date: 20151116
  Receipt Date: 20151116
  Transmission Date: 20160304
  Serious: Yes (Other)
  Sender: FDA-Public Use
  Company Number: None

PATIENT
  Age: 42 Year
  Sex: Female

DRUGS (1)
  1. ENBREL [Suspect]
     Active Substance: ETANERCEPT
     Dosage: ABOUT 3 YEARS
     Route: 058

REACTIONS (3)
  - Hypersensitivity [None]
  - Injection site pruritus [None]
  - Injection site mass [None]

NARRATIVE: CASE EVENT DATE: 20150401
